FAERS Safety Report 18943901 (Version 1)
Quarter: 2021Q1

REPORT INFORMATION
  Report Type: Spontaneous
  Country: US (occurrence: US)
  Receive Date: 20210225
  Receipt Date: 20210225
  Transmission Date: 20210420
  Serious: No
  Sender: FDA-Public Use
  Company Number: None

PATIENT
  Sex: Female

DRUGS (1)
  1. BOTOX [Suspect]
     Active Substance: ONABOTULINUMTOXINA
     Indication: MIGRAINE
     Dosage: ?          OTHER STRENGTH:200U/VL;OTHER DOSE:200U;OTHER FREQUENCY:EVERY 3 MONTHS;?
     Route: 030
     Dates: start: 201910

REACTIONS (1)
  - Drug ineffective [None]
